FAERS Safety Report 21372878 (Version 6)
Quarter: 2023Q1

REPORT INFORMATION
  Report Type: Report from Study
  Country: AT (occurrence: AT)
  Receive Date: 20220924
  Receipt Date: 20230111
  Transmission Date: 20230417
  Serious: Yes (Death, Hospitalization)
  Sender: FDA-Public Use
  Company Number: AT-ABBVIE-4129457

PATIENT
  Age: 83 Year
  Sex: Male

DRUGS (3)
  1. CARBIDOPA\LEVODOPA [Suspect]
     Active Substance: CARBIDOPA\LEVODOPA
     Indication: Parkinson^s disease
     Dosage: MD: 10,0ML; CR DAYTIME: 3,4ML/H; CR NIGHTIME: 3,4ML/H, ED: 2,0ML
     Route: 050
     Dates: start: 20180717
  2. CARBIDOPA\LEVODOPA [Suspect]
     Active Substance: CARBIDOPA\LEVODOPA
     Dosage: MD: 7,0 ML; CR: 3,7 ML/H; ED: 2,0 ML (PERCUTANEOUS J-TUBE)
     Route: 050
     Dates: start: 20221028
  3. CARBIDOPA\LEVODOPA [Suspect]
     Active Substance: CARBIDOPA\LEVODOPA
     Dosage: MD: 7,0 ML; CRD: 3,7 ML/H; CRN: 3,7ML/H, ED: 2,0 ML
     Route: 050
     Dates: start: 20180717, end: 20220107

REACTIONS (11)
  - Pneumonia aspiration [Fatal]
  - Decubitus ulcer [Not Recovered/Not Resolved]
  - Dysphagia [Recovered/Resolved]
  - Cardiac pacemaker insertion [Recovered/Resolved]
  - Pneumonia [Recovered/Resolved]
  - Atrioventricular block [Recovered/Resolved]
  - Cardiac disorder [Recovered/Resolved]
  - Bradykinesia [Unknown]
  - General physical health deterioration [Recovering/Resolving]
  - Dysphagia [Recovered/Resolved]
  - Somnolence [Recovered/Resolved]

NARRATIVE: CASE EVENT DATE: 20220919
